FAERS Safety Report 9305535 (Version 1)
Quarter: 2013Q2

REPORT INFORMATION
  Report Type: Report from Study
  Country: BR (occurrence: BR)
  Receive Date: 20130523
  Receipt Date: 20130523
  Transmission Date: 20140414
  Serious: Yes (Other)
  Sender: FDA-Public Use
  Company Number: BR-ROCHE-1226628

PATIENT
  Sex: Female

DRUGS (3)
  1. INTERFERON ALFA-2A [Suspect]
     Indication: HEPATITIS C
     Route: 065
  2. RIBAVIRIN [Suspect]
     Indication: HEPATITIS C
     Route: 065
  3. CLONAZEPAM [Concomitant]

REACTIONS (6)
  - Nasopharyngitis [Unknown]
  - Nausea [Not Recovered/Not Resolved]
  - Pain [Unknown]
  - Dizziness [Unknown]
  - Asthenia [Unknown]
  - Amenorrhoea [Not Recovered/Not Resolved]
